FAERS Safety Report 15489794 (Version 1)
Quarter: 2018Q4

REPORT INFORMATION
  Report Type: Spontaneous
  Country: US (occurrence: US)
  Receive Date: 20181011
  Receipt Date: 20181011
  Transmission Date: 20190205
  Serious: No
  Sender: FDA-Public Use
  Company Number: US-ALLERGAN-1811863US

PATIENT
  Sex: Female
  Weight: 29.48 kg

DRUGS (1)
  1. COMBIGAN [Suspect]
     Active Substance: BRIMONIDINE TARTRATE\TIMOLOL MALEATE
     Indication: GLAUCOMA
     Dosage: 2 GTT, BID
     Route: 047
     Dates: start: 201801, end: 20180228

REACTIONS (4)
  - Influenza like illness [Unknown]
  - Sneezing [Unknown]
  - Rhinorrhoea [Unknown]
  - Oropharyngeal pain [Unknown]
